FAERS Safety Report 5154778-2 (Version None)
Quarter: 2006Q4

REPORT INFORMATION
  Report Type: 
  Country: None (occurrence: None)
  Receive Date: 20061115
  Receipt Date: 20061115
  Transmission Date: 20070319
  Serious: Yes (Hospitalization)
  Sender: FDA-Public Use
  Company Number: None

PATIENT
  Age: 73 Year
  Sex: Male
  Weight: 65.7716 kg

DRUGS (2)
  1. CARBOPLATIN 5 ACU [Suspect]
     Indication: SMALL CELL LUNG CANCER STAGE UNSPECIFIED
     Dosage: 745MG  DAY 1   IV
     Route: 042
     Dates: start: 20060912, end: 20061031
  2. CPT 11    50MG/M2 [Suspect]
     Indication: SMALL CELL LUNG CANCER STAGE UNSPECIFIED
     Dosage: 86 MG   DAYS 1 AND 8   IV
     Route: 042
     Dates: start: 20060912, end: 20061031

REACTIONS (17)
  - ANAEMIA [None]
  - CHEST DISCOMFORT [None]
  - CONFUSIONAL STATE [None]
  - DECREASED APPETITE [None]
  - DIARRHOEA [None]
  - DYSPNOEA [None]
  - FATIGUE [None]
  - HAEMATOCRIT DECREASED [None]
  - HAEMOGLOBIN ABNORMAL [None]
  - HYPERSOMNIA [None]
  - IMMUNE SYSTEM DISORDER [None]
  - NEUTROPENIA [None]
  - PLATELET COUNT ABNORMAL [None]
  - PYREXIA [None]
  - RED BLOOD CELL COUNT DECREASED [None]
  - RHONCHI [None]
  - WHITE BLOOD CELL COUNT DECREASED [None]
